FAERS Safety Report 5980195-9 (Version None)
Quarter: 2008Q4

REPORT INFORMATION
  Report Type: 
  Country: None (occurrence: None)
  Receive Date: 20081205
  Receipt Date: 20081124
  Transmission Date: 20090506
  Serious: Yes (Hospitalization, Other)
  Sender: FDA-Public Use
  Company Number: FR-CELGENEUS-056-21880-08102005

PATIENT
  Sex: Female

DRUGS (4)
  1. REVLIMID [Suspect]
     Indication: MULTIPLE MYELOMA
     Route: 048
     Dates: start: 20081002, end: 20081017
  2. REVLIMID [Suspect]
     Route: 048
     Dates: start: 20081113
  3. REVLIMID [Suspect]
     Route: 048
     Dates: start: 20081120
  4. DEXAMETHASONE [Concomitant]
     Indication: MULTIPLE MYELOMA
     Route: 065

REACTIONS (4)
  - CARDIAC FAILURE [None]
  - SINUS ARRHYTHMIA [None]
  - SYNCOPE [None]
  - VENTRICULAR TACHYCARDIA [None]
